FAERS Safety Report 6846179-3 (Version None)
Quarter: 2010Q3

REPORT INFORMATION
  Report Type: 
  Country: None (occurrence: None)
  Receive Date: 20100715
  Receipt Date: 20070912
  Transmission Date: 20110219
  Serious: No
  Sender: FDA-Public Use
  Company Number: US-PFIZER INC-2007076794

PATIENT
  Sex: Female
  Weight: 56.4 kg

DRUGS (5)
  1. CHANTIX [Suspect]
     Indication: SMOKING CESSATION THERAPY
     Dates: start: 20070823, end: 20070901
  2. CYMBALTA [Concomitant]
  3. MORPHINE [Concomitant]
  4. MORPHINE [Concomitant]
  5. DIAZEPAM [Concomitant]

REACTIONS (2)
  - MALAISE [None]
  - NAUSEA [None]
